FAERS Safety Report 7144822-5 (Version None)
Quarter: 2010Q4

REPORT INFORMATION
  Report Type: 
  Country: None (occurrence: None)
  Receive Date: 20101208
  Receipt Date: 20101129
  Transmission Date: 20110411
  Serious: Yes (Hospitalization, Other)
  Sender: FDA-Public Use
  Company Number: US-ELI_LILLY_AND_COMPANY-US201001003971

PATIENT
  Sex: Female
  Weight: 61.224 kg

DRUGS (9)
  1. BYETTA [Suspect]
     Dosage: UNK, UNKNOWN
     Route: 065
     Dates: start: 20010101, end: 20071001
  2. BYETTA [Suspect]
     Dosage: UNK, UNKNOWN
     Route: 065
     Dates: start: 19960101, end: 20070701
  3. PANCREASE [Concomitant]
  4. SEROQUEL [Concomitant]
     Dosage: 35 MG, EACH EVENING
     Route: 048
  5. NORMAL SALINE [Concomitant]
     Indication: DEHYDRATION
     Dosage: UNK, UNK
     Route: 042
     Dates: start: 20050818
  6. NORMAL SALINE [Concomitant]
     Dosage: 250 ML/HR
     Dates: start: 20071216
  7. NORMAL SALINE [Concomitant]
     Dosage: 1 LITER, UNK
     Route: 040
     Dates: start: 20071221, end: 20071221
  8. NORMAL SALINE [Concomitant]
     Dosage: 1 LITER, UNK
     Route: 040
     Dates: start: 20071221, end: 20071221
  9. NORMAL SALINE [Concomitant]
     Dates: start: 20090121

REACTIONS (4)
  - CHOLANGITIS [None]
  - CHOLELITHIASIS [None]
  - PANCREATITIS ACUTE [None]
  - PANCREATITIS CHRONIC [None]
